FAERS Safety Report 7340666-X (Version None)
Quarter: 2011Q1

REPORT INFORMATION
  Report Type: 
  Country: None (occurrence: None)
  Receive Date: 20110309
  Receipt Date: 20110302
  Transmission Date: 20110831
  Serious: Yes (Hospitalization)
  Sender: FDA-Public Use
  Company Number: IT-ROCHE-759989

PATIENT
  Sex: Male

DRUGS (8)
  1. AVASTIN [Suspect]
     Indication: COLON CANCER
     Dosage: FREQUENCY: CYCLE.
     Route: 042
     Dates: start: 20101101, end: 20110101
  2. CETUXIMAB [Concomitant]
  3. XELODA [Concomitant]
     Route: 048
     Dates: start: 20101101, end: 20110101
  4. FOLINIC ACID [Concomitant]
  5. FLUOROURACIL [Concomitant]
  6. IRINOTECAN [Concomitant]
  7. OXALIPLATIN [Concomitant]
  8. PANITUMUMAB [Concomitant]

REACTIONS (2)
  - CEREBRAL ISCHAEMIA [None]
  - ABNORMAL BEHAVIOUR [None]
